FAERS Safety Report 9561155 (Version 1)
Quarter: 2013Q3

REPORT INFORMATION
  Report Type: Spontaneous
  Country: US (occurrence: None)
  Receive Date: 20130909
  Receipt Date: 20130909
  Transmission Date: 20140515
  Serious: Yes (Hospitalization)
  Sender: FDA-Public Use
  Company Number: 381393

PATIENT
  Age: 66 Year
  Sex: Female
  Weight: 70.3 kg

DRUGS (11)
  1. VICTOZA (LIRAGLUTIDE) SOLUTION FOR INJECTION, 6MG/ML [Suspect]
     Indication: TYPE 2 DIABETES MELLITUS
     Route: 058
     Dates: start: 201302, end: 201304
  2. LEVEMIR (INSULIN DETEMIR) [Concomitant]
  3. AMARYL (GLIMEPIRIDE) [Concomitant]
  4. METFORMIN [Concomitant]
  5. JANUVIA (SITAGLIPTIN PHOSPHATE) [Concomitant]
  6. ALPRAZOLAM [Concomitant]
  7. HYDROCHLOROTHIAZIDE [Concomitant]
  8. LISINOPRIL [Concomitant]
  9. CRESTOR (ROSUVASTATIN CALCIUM) [Concomitant]
  10. VITAMIN D /00107901/ (ERGOCALCIFEROL) [Concomitant]
  11. ASPIRIN (ACETYLSALICYLIC ACID) [Concomitant]

REACTIONS (1)
  - Pancreatitis [None]
